FAERS Safety Report 6476803-9 (Version None)
Quarter: 2009Q4

REPORT INFORMATION
  Report Type: 
  Country: None (occurrence: None)
  Receive Date: 20091207
  Receipt Date: 20091202
  Transmission Date: 20100525
  Serious: Yes (Death)
  Sender: FDA-Public Use
  Company Number: PHEH2009US11684

PATIENT
  Sex: Male

DRUGS (3)
  1. EXJADE [Suspect]
     Indication: MYELOFIBROSIS
     Dosage: 1000 MG DAILY
     Route: 048
     Dates: start: 20080701, end: 20090611
  2. EXJADE [Suspect]
     Indication: SERUM FERRITIN INCREASED
  3. TRANSFUSIONS [Concomitant]

REACTIONS (1)
  - DEATH [None]
